FAERS Safety Report 23140088 (Version 2)
Quarter: 2023Q4

REPORT INFORMATION
  Report Type: Spontaneous
  Country: US (occurrence: US)
  Receive Date: 20231102
  Receipt Date: 20231219
  Transmission Date: 20240110
  Serious: No
  Sender: FDA-Public Use
  Company Number: US-PFIZER INC-PV202300179161

PATIENT
  Age: 70 Year
  Sex: Female
  Weight: 44.898 kg

DRUGS (2)
  1. VYNDAMAX [Suspect]
     Active Substance: TAFAMIDIS
     Indication: Acquired ATTR amyloidosis
     Dosage: 61 MG, 1X/DAY
     Dates: start: 202111
  2. PATISIRAN [Concomitant]
     Active Substance: PATISIRAN
     Indication: Amyloidosis
     Dosage: UNK

REACTIONS (2)
  - Feeling hot [Not Recovered/Not Resolved]
  - Fatigue [Unknown]

NARRATIVE: CASE EVENT DATE: 20221101
